FAERS Safety Report 17753165 (Version 1)
Quarter: 2020Q2

REPORT INFORMATION
  Report Type: Spontaneous
  Country: US (occurrence: US)
  Receive Date: 20200506
  Receipt Date: 20200506
  Transmission Date: 20200714
  Serious: No
  Sender: FDA-Public Use
  Company Number: US-ROCHE-2507708

PATIENT
  Age: 58 Year
  Sex: Female

DRUGS (1)
  1. ESBRIET [Suspect]
     Active Substance: PIRFENIDONE
     Indication: PRODUCT USED FOR UNKNOWN INDICATION
     Dosage: THREE TIMES A ADAY
     Route: 048
     Dates: start: 201911

REACTIONS (1)
  - Dyspepsia [Unknown]

NARRATIVE: CASE EVENT DATE: 20191220
